FAERS Safety Report 19045544 (Version 2)
Quarter: 2021Q4

REPORT INFORMATION
  Report Type: Report from Study
  Country: DE (occurrence: DE)
  Receive Date: 20210322
  Receipt Date: 20211231
  Transmission Date: 20220303
  Serious: Yes (Hospitalization, Other)
  Sender: FDA-Public Use
  Company Number: DE-TAKEDA-2021TUS016173

PATIENT
  Sex: Male
  Weight: 95 kg

DRUGS (8)
  1. VEDOLIZUMAB [Suspect]
     Active Substance: VEDOLIZUMAB
     Indication: Colitis ulcerative
     Dosage: 300 MILLIGRAM
     Route: 065
     Dates: start: 20191021
  2. Salofalk [Concomitant]
     Indication: Colitis ulcerative
     Dosage: 1000 MILLIGRAM, BID
     Dates: start: 2015
  3. ASPIRIN [Concomitant]
     Active Substance: ASPIRIN
     Indication: Cerebrovascular accident
     Dosage: 100 MILLIGRAM, QD
     Dates: start: 2015
  4. TRAMADOL [Concomitant]
     Active Substance: TRAMADOL
     Indication: Pain
     Dosage: 50 MILLIGRAM, BID
  5. MAGNESIUM ASPARTATE\POTASSIUM ASPARTATE [Concomitant]
     Active Substance: MAGNESIUM ASPARTATE\POTASSIUM ASPARTATE
     Indication: Nutritional supplementation
     Dosage: UNK
  6. PREDNISOLONE [Concomitant]
     Active Substance: PREDNISOLONE
     Indication: Colitis ulcerative
     Dosage: 10 MILLIGRAM, QD
     Dates: start: 202107
  7. RAMIPRIL [Concomitant]
     Active Substance: RAMIPRIL
     Indication: Hypertension
     Dosage: 5 MILLIGRAM, BID
  8. PANTOPRAZOLE SODIUM [Concomitant]
     Active Substance: PANTOPRAZOLE SODIUM
     Indication: Oesophagitis
     Dosage: 20 MILLIGRAM, QD
     Dates: start: 202103

REACTIONS (2)
  - Rectal cancer [Recovered/Resolved]
  - Foreign body in gastrointestinal tract [Recovered/Resolved]

NARRATIVE: CASE EVENT DATE: 20201010
